FAERS Safety Report 6262542-6 (Version None)
Quarter: 2009Q3

REPORT INFORMATION
  Report Type: 
  Country: None (occurrence: None)
  Receive Date: 20090709
  Receipt Date: 20090629
  Transmission Date: 20100115
  Serious: Yes (Other)
  Sender: FDA-Public Use
  Company Number: GB-WYE-H09936209

PATIENT
  Age: 64 Year
  Sex: Male

DRUGS (2)
  1. VENLAFAXINE HYDROCHLORIDE [Suspect]
     Indication: DEPRESSION
     Dosage: UNKNOWN
     Route: 048
  2. RISPERIDONE [Suspect]
     Dosage: UNKNOWN

REACTIONS (12)
  - BRADYKINESIA [None]
  - CONFUSIONAL STATE [None]
  - DIFFUSE LARGE B-CELL LYMPHOMA [None]
  - DISORIENTATION [None]
  - DYSKINESIA [None]
  - FACIAL PAIN [None]
  - FACIAL PALSY [None]
  - HEADACHE [None]
  - MASKED FACIES [None]
  - METASTASIS [None]
  - MOBILITY DECREASED [None]
  - URINARY INCONTINENCE [None]
